FAERS Safety Report 5026110-6 (Version None)
Quarter: 2006Q2

REPORT INFORMATION
  Report Type: 
  Country: None (occurrence: None)
  Receive Date: 20060612
  Receipt Date: 20060612
  Transmission Date: 20061013
  Serious: Yes (Hospitalization)
  Sender: FDA-Public Use
  Company Number: None

PATIENT
  Age: 77 Year
  Sex: Female
  Weight: 20.8655 kg

DRUGS (2)
  1. DOCETAXEL [Suspect]
     Indication: CHEMOTHERAPY
     Dosage: 60 MG/M2 IV /1 HR EVERY 3WK
     Route: 042
     Dates: start: 20060605
  2. GEFITINIB [Suspect]
     Indication: CHEMOTHERAPY
     Dosage: 250 MG ORAL DOSE/DAY
     Route: 048
     Dates: start: 20060605

REACTIONS (3)
  - ASTHENIA [None]
  - LOSS OF CONSCIOUSNESS [None]
  - PAIN [None]
